FAERS Safety Report 10574544 (Version 8)
Quarter: 2015Q1

REPORT INFORMATION
  Report Type: Report from Study
  Country: US (occurrence: US)
  Receive Date: 20141110
  Receipt Date: 20150203
  Transmission Date: 20150720
  Serious: Yes (Hospitalization)
  Sender: FDA-Public Use
  Company Number: US-009507513-1411USA002148

PATIENT
  Age: 68 Year
  Sex: Male
  Weight: 74.3 kg

DRUGS (18)
  1. PEMBROLIZUMAB. [Suspect]
     Active Substance: PEMBROLIZUMAB
     Dosage: 10 MG/KG, QOW
     Route: 042
     Dates: start: 20140926, end: 20140926
  2. DEXLANSOPRAZOLE [Concomitant]
     Active Substance: DEXLANSOPRAZOLE
     Indication: GASTROOESOPHAGEAL REFLUX DISEASE
     Dosage: 1 TABLET, QD
     Route: 048
     Dates: start: 20130920
  3. DOCUSATE SODIUM. [Concomitant]
     Active Substance: DOCUSATE SODIUM
     Indication: CONSTIPATION PROPHYLAXIS
     Dosage: 1 DF, QD
     Route: 048
     Dates: start: 20140619
  4. DURAGESIC [Concomitant]
     Active Substance: FENTANYL
     Indication: BONE PAIN
     Dosage: TOTAL DAILY DOSE: 25 MICROGRAM/HOUR, OTHER (FORMULATION: PATCH)
     Route: 062
     Dates: start: 20140926
  5. LEVOTHYROXINE SODIUM. [Concomitant]
     Active Substance: LEVOTHYROXINE SODIUM
     Indication: HYPOTHYROIDISM
     Dosage: 25 MICROGRAM, QD
     Route: 048
     Dates: start: 20141006, end: 20141021
  6. ENOXAPARIN SODIUM. [Concomitant]
     Active Substance: ENOXAPARIN SODIUM
     Indication: DEEP VEIN THROMBOSIS
     Dosage: 0.7 ML, BID
     Route: 058
     Dates: start: 20141017
  7. ACETAMINOPHEN (+) HYDROCODONE BITARTRATE [Concomitant]
     Active Substance: ACETAMINOPHEN\HYDROCODONE
     Indication: PAIN
     Dosage: TOTAL DAILY DOSE:1 TABLET, PRN
     Route: 048
     Dates: start: 20130920
  8. MESALAMINE. [Concomitant]
     Active Substance: MESALAMINE
     Indication: PROCTITIS ULCERATIVE
     Dosage: 1 TABLET, QD
     Route: 048
     Dates: start: 200901
  9. MORPHINE [Concomitant]
     Active Substance: MORPHINE
     Indication: PAIN
     Dosage: TOTAL DAILY DOSE:15 MG, PRN
     Route: 048
     Dates: start: 20130920
  10. CELECOXIB. [Concomitant]
     Active Substance: CELECOXIB
     Indication: BONE PAIN
     Dosage: 200 MG, BID
     Route: 048
     Dates: start: 20140718
  11. MORPHINE SULFATE. [Concomitant]
     Active Substance: MORPHINE SULFATE
     Indication: BONE PAIN
     Dosage: 15MG DAILY DOSE, PRN
     Route: 048
     Dates: start: 20140106, end: 20141212
  12. MIRALAX [Concomitant]
     Active Substance: POLYETHYLENE GLYCOL 3350
     Indication: CONSTIPATION PROPHYLAXIS
     Dosage: 17 G, QD
     Route: 048
     Dates: start: 20130920
  13. PEMBROLIZUMAB. [Suspect]
     Active Substance: PEMBROLIZUMAB
     Indication: GASTRIC CANCER
     Dosage: 10 MG/KG, QOW
     Route: 042
     Dates: start: 20131108, end: 20140912
  14. LEVOTHYROXINE SODIUM. [Concomitant]
     Active Substance: LEVOTHYROXINE SODIUM
     Indication: HYPOTHYROIDISM
     Dosage: 75 MICROGRAM, QD
     Route: 048
     Dates: start: 20141021
  15. CITALOPRAM [Concomitant]
     Active Substance: CITALOPRAM HYDROBROMIDE
     Indication: ANXIETY
     Dosage: 20 MG, QD
     Route: 048
     Dates: start: 20130920
  16. IBUPROFEN. [Concomitant]
     Active Substance: IBUPROFEN
     Indication: PAIN
     Dosage: TOTAL DAILY DOSE:1 TABLET, PRN
     Route: 048
     Dates: start: 20130920
  17. ERGOCALCIFEROL. [Concomitant]
     Active Substance: ERGOCALCIFEROL
     Indication: ROUTINE HEALTH MAINTENANCE
     Dosage: 1 TABLET, QD
     Route: 048
     Dates: start: 20130920
  18. CALCIUM CARBONATE. [Concomitant]
     Active Substance: CALCIUM CARBONATE
     Indication: ROUTINE HEALTH MAINTENANCE
     Dosage: 600 MG, QD
     Route: 048
     Dates: start: 20131108

REACTIONS (1)
  - Pleural effusion [Recovered/Resolved]

NARRATIVE: CASE EVENT DATE: 20141027
